FAERS Safety Report 18322756 (Version 1)
Quarter: 2020Q3

REPORT INFORMATION
  Report Type: Spontaneous
  Country: FR (occurrence: FR)
  Receive Date: 20200929
  Receipt Date: 20200929
  Transmission Date: 20201103
  Serious: Yes (Hospitalization)
  Sender: FDA-Public Use
  Company Number: FR-ACCORD-202859

PATIENT
  Age: 85 Year
  Sex: Male
  Weight: 77 kg

DRUGS (8)
  1. CLOPIDOGREL [Suspect]
     Active Substance: CLOPIDOGREL BISULFATE
     Indication: AORTIC ARTERIOSCLEROSIS
     Route: 048
     Dates: end: 20200428
  2. CRESTOR [Concomitant]
     Active Substance: ROSUVASTATIN CALCIUM
     Dosage: STRENGTH : 10MG
  3. MULTICROM [Concomitant]
     Active Substance: CROMOLYN SODIUM
  4. BYETTA [Concomitant]
     Active Substance: EXENATIDE
  5. FLIXONASE [Concomitant]
     Active Substance: FLUTICASONE PROPIONATE
  6. METFORMIN [Concomitant]
     Active Substance: METFORMIN HYDROCHLORIDE
  7. PANTOPRAZOLE [Concomitant]
     Active Substance: PANTOPRAZOLE
  8. EXFORGE [Concomitant]
     Active Substance: AMLODIPINE BESYLATE\VALSARTAN
     Dosage: STRRENGTH : 5 MG / 160 MG

REACTIONS (1)
  - Cerebral haematoma [Not Recovered/Not Resolved]

NARRATIVE: CASE EVENT DATE: 20200428
